FAERS Safety Report 24297375 (Version 1)
Quarter: 2024Q3

REPORT INFORMATION
  Report Type: Spontaneous
  Country: GB (occurrence: GB)
  Receive Date: 20240909
  Receipt Date: 20240909
  Transmission Date: 20241016
  Serious: No
  Sender: ALKEM
  Company Number: None

PATIENT
  Age: 43 Year
  Sex: Female
  Weight: 142 kg

DRUGS (6)
  1. PREGABALIN [Suspect]
     Active Substance: PREGABALIN
     Indication: Product used for unknown indication
     Dosage: 50 MILLIGRAM TABLET, QD
     Route: 065
     Dates: start: 20240123
  2. AMITRIPTYLINE HYDROCHLORIDE [Concomitant]
     Active Substance: AMITRIPTYLINE HYDROCHLORIDE
     Indication: Myalgia
     Dosage: UNK, HS (TAKE 1-2 AT NIGHT AS ADVISED B)
     Route: 065
     Dates: start: 20230718, end: 20240123
  3. FLUOXETINE [Concomitant]
     Active Substance: FLUOXETINE HYDROCHLORIDE
     Indication: Product used for unknown indication
     Dosage: UNK, QD (2 OM)
     Route: 065
     Dates: start: 20221209
  4. FOLIC ACID [Concomitant]
     Active Substance: FOLIC ACID
     Indication: Product used for unknown indication
     Dosage: UNK, QD (TAKE ONE DAILY)
     Route: 065
     Dates: start: 20231212
  5. MIRENA [Concomitant]
     Active Substance: LEVONORGESTREL
     Indication: Product used for unknown indication
     Dosage: UNK (USE AS DIRECTED )
     Route: 065
     Dates: start: 20240117, end: 20240118
  6. OTOMIZE [Concomitant]
     Indication: Product used for unknown indication
     Dosage: UNK (USE ONE SPRAY INTO THE AFFECTED EAR(S) THREE TI)
     Route: 065
     Dates: start: 20240102, end: 20240109

REACTIONS (2)
  - Dizziness [Unknown]
  - Headache [Recovering/Resolving]
